FAERS Safety Report 16474102 (Version 2)
Quarter: 2019Q3

REPORT INFORMATION
  Report Type: Spontaneous
  Country: US (occurrence: US)
  Receive Date: 20190625
  Receipt Date: 20190806
  Transmission Date: 20191004
  Serious: No
  Sender: FDA-Public Use
  Company Number: US-PFIZER INC-2019271201

PATIENT
  Sex: Female

DRUGS (3)
  1. IBRANCE [Suspect]
     Active Substance: PALBOCICLIB
     Indication: BREAST CANCER FEMALE
     Dosage: 125 MG, ONCE A DAY
     Dates: start: 20190613
  2. DENOSUMAB [Concomitant]
     Active Substance: DENOSUMAB
     Dosage: UNK (DENOSUMAB INFUSION 90 DAYS)
  3. FASLODEX [Concomitant]
     Active Substance: FULVESTRANT
     Dosage: UNK (FASLODEX INJECTION 4 WEEKS)
     Dates: start: 201905

REACTIONS (1)
  - Hypoacusis [Not Recovered/Not Resolved]
